FAERS Safety Report 17825027 (Version 1)
Quarter: 2020Q2

REPORT INFORMATION
  Report Type: Spontaneous
  Country: US (occurrence: US)
  Receive Date: 20200526
  Receipt Date: 20200526
  Transmission Date: 20200714
  Serious: No
  Sender: FDA-Public Use
  Company Number: US-SA-2020SA129030

PATIENT
  Sex: Female

DRUGS (22)
  1. SEROQUEL [Concomitant]
     Active Substance: QUETIAPINE FUMARATE
  2. MONTELUKAST SODIUM. [Concomitant]
     Active Substance: MONTELUKAST SODIUM
  3. ABILIFY [Concomitant]
     Active Substance: ARIPIPRAZOLE
  4. LOSARTAN POTASSIUM. [Concomitant]
     Active Substance: LOSARTAN POTASSIUM
  5. DULERA [Concomitant]
     Active Substance: FORMOTEROL FUMARATE DIHYDRATE\MOMETASONE FUROATE
  6. ZYRTEC [Concomitant]
     Active Substance: CETIRIZINE HYDROCHLORIDE
  7. AIMOVIG [Concomitant]
     Active Substance: ERENUMAB-AOOE
  8. LASIX [Concomitant]
     Active Substance: FUROSEMIDE
  9. LINZESS [Concomitant]
     Active Substance: LINACLOTIDE
  10. ALBUTEROL SULFATE. [Concomitant]
     Active Substance: ALBUTEROL SULFATE
  11. COMBIVENT RESPIMAT [Concomitant]
     Active Substance: ALBUTEROL SULFATE\IPRATROPIUM BROMIDE
  12. DUPIXENT [Suspect]
     Active Substance: DUPILUMAB
     Indication: ASTHMA
     Dosage: 300 MG, QOW
     Route: 058
  13. ERRIN [ERYTHROMYCIN] [Concomitant]
  14. TOPAMAX [Concomitant]
     Active Substance: TOPIRAMATE
  15. XANAX [Concomitant]
     Active Substance: ALPRAZOLAM
  16. EFFEXOR XR [Concomitant]
     Active Substance: VENLAFAXINE HYDROCHLORIDE
  17. DEPAKOTE [Concomitant]
     Active Substance: DIVALPROEX SODIUM
  18. POTASSIUM 99 [Concomitant]
  19. FERROUS SULFATE. [Concomitant]
     Active Substance: FERROUS SULFATE
  20. SPIRIVA [Concomitant]
     Active Substance: TIOTROPIUM BROMIDE MONOHYDRATE
  21. PROTONIX [OMEPRAZOLE] [Concomitant]
     Active Substance: OMEPRAZOLE
  22. SYNTHROID [Concomitant]
     Active Substance: LEVOTHYROXINE SODIUM

REACTIONS (1)
  - Asthma [Unknown]
